FAERS Safety Report 21355425 (Version 1)
Quarter: 2022Q3

REPORT INFORMATION
  Report Type: Spontaneous
  Country: US (occurrence: US)
  Receive Date: 20220920
  Receipt Date: 20220920
  Transmission Date: 20221026
  Serious: Yes (Life-Threatening, Disabling, Other)
  Sender: FDA-Public Use
  Company Number: US-PFIZER INC-202201163754

PATIENT
  Age: 69 Year
  Sex: Female
  Weight: 86.18 kg

DRUGS (1)
  1. PAXLOVID [Suspect]
     Active Substance: NIRMATRELVIR\RITONAVIR
     Indication: COVID-19 treatment
     Dosage: 3 DF, 2X/DAY (BLISTER PACK 3 TABLETS TWICE A DAY FOR 5 DAYS)
     Dates: start: 20220902, end: 20220906

REACTIONS (21)
  - Near death experience [Unknown]
  - Loss of consciousness [Unknown]
  - Nausea [Recovered/Resolved]
  - Diarrhoea [Recovering/Resolving]
  - Gastrooesophageal reflux disease [Recovering/Resolving]
  - Noninfective gingivitis [Not Recovered/Not Resolved]
  - Stomatitis [Not Recovered/Not Resolved]
  - Nasal disorder [Not Recovered/Not Resolved]
  - Pharyngeal disorder [Not Recovered/Not Resolved]
  - Mouth ulceration [Recovering/Resolving]
  - Oesophageal ulcer [Recovering/Resolving]
  - Pharyngeal ulceration [Recovering/Resolving]
  - Temperature regulation disorder [Not Recovered/Not Resolved]
  - Feeling hot [Not Recovered/Not Resolved]
  - Hyperhidrosis [Not Recovered/Not Resolved]
  - Headache [Not Recovered/Not Resolved]
  - Dysgeusia [Recovered/Resolved]
  - Gastrointestinal disorder [Unknown]
  - Feeding disorder [Unknown]
  - Pyrexia [Unknown]
  - Asthenia [Unknown]

NARRATIVE: CASE EVENT DATE: 20220902
